FAERS Safety Report 20803295 (Version 1)
Quarter: 2022Q2

REPORT INFORMATION
  Report Type: Spontaneous
  Country: FR (occurrence: FR)
  Receive Date: 20220509
  Receipt Date: 20220509
  Transmission Date: 20220721
  Serious: Yes (Hospitalization, Other)
  Sender: FDA-Public Use
  Company Number: FR-NOVARTISPH-NVSC2022FR105977

PATIENT
  Age: 16 Month
  Sex: Female
  Weight: 9.38 kg

DRUGS (5)
  1. ZOLGENSMA [Suspect]
     Active Substance: ONASEMNOGENE ABEPARVOVEC-XIOI
     Indication: Spinal muscular atrophy
     Dosage: 1 ML
     Route: 042
     Dates: start: 20220224
  2. SOLU-MEDROL [Concomitant]
     Active Substance: METHYLPREDNISOLONE SODIUM SUCCINATE
     Indication: Product used for unknown indication
     Dosage: 2 MG/KG/DAY
     Route: 065
     Dates: start: 20220223, end: 20220304
  3. SOLUPRED [Concomitant]
     Indication: Product used for unknown indication
     Dosage: 2 MG/KG/DAY
     Route: 065
     Dates: start: 20220304, end: 20220307
  4. SOLUPRED [Concomitant]
     Dosage: 1 MG/KG/DAY
     Route: 065
     Dates: start: 20220307, end: 20220425
  5. SOLUPRED [Concomitant]
     Dosage: 2 MG/KG/DAY
     Route: 065
     Dates: start: 20220425

REACTIONS (5)
  - Hepatic cytolysis [Recovering/Resolving]
  - Cholestasis [Recovering/Resolving]
  - Transaminases increased [Recovering/Resolving]
  - Hepatomegaly [Unknown]
  - Faeces discoloured [Unknown]

NARRATIVE: CASE EVENT DATE: 20220426
